FAERS Safety Report 4845033-6 (Version None)
Quarter: 2005Q4

REPORT INFORMATION
  Report Type: 
  Country: None (occurrence: None)
  Receive Date: 20051205
  Receipt Date: 20051004
  Transmission Date: 20060501
  Serious: Yes (Hospitalization)
  Sender: FDA-Public Use
  Company Number: US-MERCK-0510USA03260

PATIENT
  Age: 69 Year
  Sex: Male
  Weight: 102 kg

DRUGS (1)
  1. VIOXX [Suspect]
     Indication: JOINT SWELLING
     Route: 048
     Dates: start: 20011001, end: 20040901

REACTIONS (3)
  - CEREBROVASCULAR ACCIDENT [None]
  - EMOTIONAL DISORDER [None]
  - NERVOUSNESS [None]
